FAERS Safety Report 7755526-X (Version None)
Quarter: 2011Q3

REPORT INFORMATION
  Report Type: 
  Country: None (occurrence: None)
  Receive Date: 20110914
  Receipt Date: 20110902
  Transmission Date: 20111222
  Serious: Yes (Other)
  Sender: FDA-Public Use
  Company Number: 2010MA002609

PATIENT
  Age: 49 Year
  Sex: Female

DRUGS (4)
  1. TEMAZEPAM [Concomitant]
  2. RAMIPRIL CAPSULES, 10MG (AELLC) (RAMIPRIL) [Suspect]
     Indication: HYPERTENSION
     Dosage: 10 MG
  3. CLOZAPINE [Concomitant]
  4. AMISULPRIDE (AMISULPRIDE) [Suspect]
     Indication: SCHIZOPHRENIA
     Dosage: 200 MG; PO
     Route: 048

REACTIONS (7)
  - WHITE BLOOD CELL COUNT DECREASED [None]
  - BREAST CANCER [None]
  - DEPRESSION [None]
  - HYPERTENSION [None]
  - INSOMNIA [None]
  - PLATELET COUNT DECREASED [None]
  - HAEMOGLOBIN DECREASED [None]
